FAERS Safety Report 9291124 (Version 2)
Quarter: 2013Q4

REPORT INFORMATION
  Report Type: Spontaneous
  Country: US (occurrence: US)
  Receive Date: 20130515
  Receipt Date: 20131204
  Transmission Date: 20140711
  Serious: Yes (Other)
  Sender: FDA-Public Use
  Company Number: US-BAYER-2013-060560

PATIENT
  Age: 41 Year
  Sex: Female
  Weight: 54.42 kg

DRUGS (8)
  1. YASMIN [Suspect]
     Indication: CONTRACEPTION
     Dosage: UNK
     Dates: start: 2002, end: 2008
  2. OCELLA [Suspect]
     Dosage: UNK
     Dates: start: 2008, end: 2009
  3. OCELLA [Suspect]
     Dosage: UNK
     Dates: start: 2010, end: 2011
  4. AZATHIOPRINE [Concomitant]
     Dosage: 50 MG, UNK
     Route: 048
     Dates: start: 20110124, end: 20110327
  5. ASACOL [Concomitant]
     Dosage: 400 MG, UNK
     Route: 048
     Dates: start: 20110130, end: 20110303
  6. FLUCONAZOLE [Concomitant]
     Dosage: 150 MG, UNK
     Route: 048
     Dates: start: 20110207
  7. PREDNISONE [Concomitant]
     Indication: COLITIS
     Dosage: DAILY
     Dates: start: 2008, end: 2013
  8. CALCIUM [Concomitant]
     Dosage: DAILY

REACTIONS (5)
  - Deep vein thrombosis [None]
  - Pain [None]
  - Injury [None]
  - Joint swelling [None]
  - Erythema [None]
